FAERS Safety Report 7501536-7 (Version None)
Quarter: 2011Q2

REPORT INFORMATION
  Report Type: 
  Country: None (occurrence: None)
  Receive Date: 20110524
  Receipt Date: 20110512
  Transmission Date: 20111010
  Serious: Yes (Death, Other)
  Sender: FDA-Public Use
  Company Number: JP-WATSON-2011-05612

PATIENT
  Age: 11 Year
  Sex: Male

DRUGS (11)
  1. PREDNISOLONE ACETATE [Suspect]
     Indication: LYMPHOMA
     Dosage: UNK
     Route: 065
  2. ASPARAGINASE [Suspect]
     Indication: LYMPHOMA
     Dosage: UNK
     Route: 065
  3. TACROLIMUS [Suspect]
     Indication: PROPHYLAXIS AGAINST TRANSPLANT REJECTION
     Dosage: UNK
     Route: 065
  4. FLUDARABINE PHOSPHATE [Suspect]
     Indication: LYMPHOMA
     Dosage: 25 MG/M2 FOR 4 DAYS
     Route: 065
  5. VINCRISTINE [Suspect]
     Indication: LYMPHOMA
     Route: 065
  6. METHYLPREDNISOLONE [Suspect]
     Indication: LYMPHOMA
     Dosage: PULSE THERAPY
     Route: 065
  7. MYCOPHENOLATE MEFETIL [Suspect]
     Dosage: UNK
     Route: 065
  8. CYCLOPHOSPHAMIDE [Suspect]
     Indication: LYMPHOMA
     Dosage: 10 MG/KG FOR 4 DAYS
     Route: 065
  9. CYTARABINE [Suspect]
     Indication: LYMPHOMA
     Dosage: 300 MG/M2
     Route: 065
  10. VINDESINE [Suspect]
     Indication: LYMPHOMA
     Dosage: UNK
     Route: 065
  11. METHOTREXATE [Suspect]
     Indication: LYMPHOMA
     Dosage: UNK
     Route: 065

REACTIONS (2)
  - CARDIO-RESPIRATORY ARREST [None]
  - PRECURSOR T-LYMPHOBLASTIC LYMPHOMA/LEUKAEMIA [None]
